FAERS Safety Report 5360074-0 (Version None)
Quarter: 2007Q2

REPORT INFORMATION
  Report Type: 
  Country: None (occurrence: None)
  Receive Date: 20070618
  Receipt Date: 20070320
  Transmission Date: 20071010
  Serious: No
  Sender: FDA-Public Use
  Company Number: US-ASTRAZENECA-2007UW02861

PATIENT
  Age: 68 Year
  Sex: Female

DRUGS (4)
  1. FASLODEX [Suspect]
     Indication: BREAST CANCER
     Dosage: 2 DOSES
     Route: 030
  2. CALCIUM CHLORIDE [Concomitant]
  3. NEXIUM [Concomitant]
     Route: 048
  4. ARIMIDEX [Concomitant]
     Indication: BREAST CANCER
     Route: 048
     Dates: start: 20010101, end: 20061201

REACTIONS (5)
  - ABDOMINAL DISTENSION [None]
  - EATING DISORDER [None]
  - NAUSEA [None]
  - TRICHORRHEXIS [None]
  - WEIGHT INCREASED [None]
